FAERS Safety Report 7112090-6 (Version None)
Quarter: 2010Q4

REPORT INFORMATION
  Report Type: 
  Country: None (occurrence: None)
  Receive Date: 20101119
  Receipt Date: 20101112
  Transmission Date: 20110411
  Serious: Yes (Other)
  Sender: FDA-Public Use
  Company Number: DE-PFIZER INC-2010146797

PATIENT
  Age: 17 Year
  Sex: Male

DRUGS (1)
  1. REVATIO [Suspect]
     Indication: PULMONARY ARTERIAL PRESSURE
     Dosage: 15 MG, 3X/DAY

REACTIONS (1)
  - PULMONARY ARTERIAL PRESSURE ABNORMAL [None]
